FAERS Safety Report 5097684-4 (Version None)
Quarter: 2006Q3

REPORT INFORMATION
  Report Type: 
  Country: None (occurrence: None)
  Receive Date: 20060901
  Receipt Date: 20060824
  Transmission Date: 20061208
  Serious: Yes (Death, Hospitalization)
  Sender: FDA-Public Use
  Company Number: AZATH200600279

PATIENT
  Age: 33 Year
  Sex: Male

DRUGS (4)
  1. VIDAZA [Suspect]
     Indication: MYELODYSPLASTIC SYNDROME
     Dosage: 100 MG (DAILY X 7 DAYS), SUBCUTANEOUS
     Route: 058
     Dates: start: 20060616, end: 20060622
  2. LPRC (RED BLOOD CELLS, LEUCOCYTE DEPLETED) [Concomitant]
  3. ONDANSETRON (ONDANSETRON) (TABLETS) [Concomitant]
  4. G-CSF (GRANULOCYTE COLONY STIMULATING FACTOR) [Concomitant]

REACTIONS (4)
  - INFECTION [None]
  - NAUSEA [None]
  - NEUTROPENIA [None]
  - VOMITING [None]
